FAERS Safety Report 7559507-0 (Version None)
Quarter: 2011Q2

REPORT INFORMATION
  Report Type: 
  Country: None (occurrence: None)
  Receive Date: 20110613
  Receipt Date: 20110531
  Transmission Date: 20111010
  Serious: Yes (Hospitalization, Disabling)
  Sender: FDA-Public Use
  Company Number: 2011SP000497

PATIENT
  Age: 74 Year
  Sex: Male
  Weight: 73.5 kg

DRUGS (10)
  1. SIMVASTATIN [Concomitant]
  2. XOPENEX [Suspect]
     Indication: CHRONIC OBSTRUCTIVE PULMONARY DISEASE
     Dosage: 1.25 MG/3ML;PRN;INHALATION
     Route: 055
  3. PRILOSEC [Concomitant]
  4. AMIODARONE HCL [Concomitant]
  5. WARFARIN SODIUM [Concomitant]
  6. VITAMIN A [Concomitant]
  7. FERROUS SULFATE TAB [Concomitant]
  8. ALBUTEROL [Concomitant]
  9. QUINAPRIL HCL [Concomitant]
  10. OXYCODONE HYDROCHLORIDE [Suspect]
     Indication: CHEST PAIN
     Dates: start: 20110501

REACTIONS (10)
  - RESPIRATORY TRACT CONGESTION [None]
  - NASOPHARYNGITIS [None]
  - VERTIGO [None]
  - MUSCULOSKELETAL CHEST PAIN [None]
  - INCREASED UPPER AIRWAY SECRETION [None]
  - GAIT DISTURBANCE [None]
  - DIZZINESS [None]
  - BALANCE DISORDER [None]
  - PREMATURE AGEING [None]
  - HEADACHE [None]
